FAERS Safety Report 23786758 (Version 2)
Quarter: 2024Q2

REPORT INFORMATION
  Report Type: Spontaneous
  Country: US (occurrence: US)
  Receive Date: 20240426
  Receipt Date: 20240523
  Transmission Date: 20240715
  Serious: No
  Sender: FDA-Public Use
  Company Number: US-MTPC-MTDA2024-0008958

PATIENT
  Age: 48 Year
  Sex: Male

DRUGS (2)
  1. RADICAVA ORS [Suspect]
     Active Substance: EDARAVONE
     Indication: Amyotrophic lateral sclerosis
     Dosage: 5 MILLILITER, FOR 14 DAYS FOLLOWED BY 14 DAY DRUG FREE.
     Route: 048
     Dates: start: 20231102, end: 20240422
  2. RADICAVA ORS [Suspect]
     Active Substance: EDARAVONE
     Indication: Amyotrophic lateral sclerosis
     Dosage: 5 MILLILITER, FOR 14 DAYS FOLLOWED BY 14 DAY DRUG FREE.
     Route: 048
     Dates: start: 20231102, end: 20240422

REACTIONS (1)
  - Disease progression [Recovering/Resolving]

NARRATIVE: CASE EVENT DATE: 20240401
